FAERS Safety Report 8603545 (Version 5)
Quarter: 2013Q3

REPORT INFORMATION
  Report Type: Spontaneous
  Country: US (occurrence: US)
  Receive Date: 20120607
  Receipt Date: 20130901
  Transmission Date: 20140515
  Serious: Yes (Other)
  Sender: FDA-Public Use
  Company Number: US-PFIZER INC-2012133631

PATIENT
  Age: 64 Year
  Sex: Female

DRUGS (3)
  1. LYRICA [Suspect]
     Indication: PAIN
     Dosage: 75 MG, 2X/DAY
  2. LYRICA [Suspect]
     Dosage: 50 MG, 1X/DAY
  3. LYRICA [Suspect]
     Dosage: 50 MG, 2X/DAY
     Route: 048

REACTIONS (5)
  - Back disorder [Unknown]
  - Paralysis [Unknown]
  - Walking aid user [Unknown]
  - Balance disorder [Unknown]
  - Drug ineffective [Unknown]
